APPROVED DRUG PRODUCT: TOLCAPONE
Active Ingredient: TOLCAPONE
Strength: 100MG
Dosage Form/Route: TABLET;ORAL
Application: A204584 | Product #001
Applicant: PH HEALTH LTD
Approved: Mar 26, 2015 | RLD: No | RS: No | Type: DISCN